FAERS Safety Report 7673658-1 (Version None)
Quarter: 2011Q3

REPORT INFORMATION
  Report Type: 
  Country: None (occurrence: None)
  Receive Date: 20110804
  Receipt Date: 20110720
  Transmission Date: 20111222
  Serious: Yes (Hospitalization, Other)
  Sender: FDA-Public Use
  Company Number: 2011MA009203

PATIENT
  Age: 45 Year
  Sex: Female

DRUGS (3)
  1. SERTRALINE HYDROCHLORIDE [Suspect]
     Indication: DEPRESSION
     Dosage: 25 MG, QD
  2. EPOGEN [Concomitant]
  3. IRON (IRON) [Suspect]
     Indication: PRODUCT USED FOR UNKNOWN INDICATION

REACTIONS (5)
  - HYPOTENSION [None]
  - BLOOD PRESSURE FLUCTUATION [None]
  - SEROTONIN SYNDROME [None]
  - ATRIAL FIBRILLATION [None]
  - LOSS OF CONSCIOUSNESS [None]
